FAERS Safety Report 21518399 (Version 2)
Quarter: 2023Q2

REPORT INFORMATION
  Report Type: Report from Study
  Country: GB (occurrence: GB)
  Receive Date: 20221028
  Receipt Date: 20230626
  Transmission Date: 20230721
  Serious: Yes (Hospitalization)
  Sender: FDA-Public Use
  Company Number: GB-ABBVIE-4176507

PATIENT
  Age: 36 Year
  Sex: Male
  Weight: 132 kg

DRUGS (1)
  1. SKYRIZI [Suspect]
     Active Substance: RISANKIZUMAB-RZAA
     Indication: Psoriasis
     Route: 058
     Dates: start: 20200601, end: 20211215

REACTIONS (1)
  - Procedural vomiting [Recovered/Resolved]

NARRATIVE: CASE EVENT DATE: 20220524
